FAERS Safety Report 5239601-X (Version None)
Quarter: 2007Q1

REPORT INFORMATION
  Report Type: 
  Country: None (occurrence: None)
  Receive Date: 20070216
  Receipt Date: 20070207
  Transmission Date: 20070707
  Serious: Yes (Other)
  Sender: FDA-Public Use
  Company Number: US-ROCHE-480849

PATIENT
  Age: 78 Year
  Sex: Female

DRUGS (4)
  1. BONIVA [Suspect]
     Indication: OSTEOPOROSIS
     Route: 048
     Dates: start: 20070107
  2. SPIRIVA [Concomitant]
     Dosage: TAKEN FOR YEARS.
  3. ACIPHEX [Concomitant]
     Indication: DRUG USE FOR UNKNOWN INDICATION
     Dosage: TAKEN FOR YEARS.
  4. REMERON [Concomitant]
     Dosage: TAKEN FOR YEARS.

REACTIONS (6)
  - CHRONIC OBSTRUCTIVE PULMONARY DISEASE [None]
  - DRY MOUTH [None]
  - DYSPHAGIA [None]
  - DYSPNOEA [None]
  - LIP SWELLING [None]
  - UPPER RESPIRATORY TRACT INFECTION [None]
